FAERS Safety Report 5598151-1 (Version None)
Quarter: 2007Q4

REPORT INFORMATION
  Report Type: 
  Country: None (occurrence: None)
  Receive Date: 20071226
  Receipt Date: 20070907
  Transmission Date: 20080405
  Serious: No
  Sender: FDA-Public Use
  Company Number: 2007PV033418

PATIENT
  Age: 72 Year
  Sex: Female
  Weight: 80.2867 kg

DRUGS (4)
  1. SYMLIN [Suspect]
     Indication: DIABETES MELLITUS
     Dosage: 120 MCG, SC
     Route: 058
     Dates: start: 20070801, end: 20070801
  2. SYMLIN [Suspect]
     Indication: DIABETES MELLITUS
     Dosage: 120 MCG, SC
     Route: 058
     Dates: start: 20070801
  3. WATER PILL [Concomitant]
  4. NOVOLOG [Concomitant]

REACTIONS (6)
  - BLOOD GLUCOSE INCREASED [None]
  - DISTURBANCE IN ATTENTION [None]
  - DRUG INEFFECTIVE [None]
  - MALAISE [None]
  - NAUSEA [None]
  - WEIGHT INCREASED [None]
